FAERS Safety Report 13623061 (Version 2)
Quarter: 2017Q3

REPORT INFORMATION
  Report Type: Report from Study
  Country: US (occurrence: US)
  Receive Date: 20170607
  Receipt Date: 20170711
  Transmission Date: 20171127
  Serious: No
  Sender: FDA-Public Use
  Company Number: US-AMGEN-USASL2017085808

PATIENT
  Age: 37 Year
  Sex: Female

DRUGS (1)
  1. ENBREL [Suspect]
     Active Substance: ETANERCEPT
     Indication: ANKYLOSING SPONDYLITIS
     Dosage: 50 MG, QWK
     Route: 065

REACTIONS (7)
  - Headache [Not Recovered/Not Resolved]
  - Renal pain [Recovered/Resolved]
  - Back pain [Recovered/Resolved]
  - Therapeutic response unexpected [Unknown]
  - Musculoskeletal stiffness [Unknown]
  - Mobility decreased [Unknown]
  - Joint crepitation [Not Recovered/Not Resolved]
